FAERS Safety Report 9806956 (Version 1)
Quarter: 2014Q1

REPORT INFORMATION
  Report Type: Spontaneous
  Country: US (occurrence: US)
  Receive Date: 20140109
  Receipt Date: 20140109
  Transmission Date: 20141002
  Serious: Yes (Death)
  Sender: FDA-Public Use
  Company Number: US-PFIZER INC-2014005143

PATIENT
  Age: 22 Year
  Sex: Male

DRUGS (9)
  1. OXYCODONE HYDROCHLORIDE [Suspect]
     Dosage: UNK
  2. ALPRAZOLAM [Suspect]
     Dosage: UNK
  3. HEROIN [Suspect]
     Dosage: UNK
  4. HYDROCODONE [Suspect]
     Dosage: UNK
  5. TRAMADOL [Suspect]
     Dosage: UNK
  6. CYCLOBENZAPRINE [Suspect]
     Dosage: UNK
  7. DOXYLAMINE [Suspect]
     Dosage: UNK
  8. PHENCYCLIDINE [Suspect]
     Dosage: UNK
  9. ACETAMINOPHEN [Suspect]
     Dosage: UNK

REACTIONS (1)
  - Drug abuse [Fatal]
